FAERS Safety Report 17711106 (Version 1)
Quarter: 2020Q2

REPORT INFORMATION
  Report Type: Spontaneous
  Country: US (occurrence: US)
  Receive Date: 20200427
  Receipt Date: 20200427
  Transmission Date: 20200714
  Serious: No
  Sender: FDA-Public Use
  Company Number: US-PFIZER INC-2020163764

PATIENT
  Age: 61 Year
  Sex: Female
  Weight: 60.33 kg

DRUGS (16)
  1. IBUPROFEN. [Concomitant]
     Active Substance: IBUPROFEN
     Indication: MIGRAINE
  2. ALPRAZOLAM. [Suspect]
     Active Substance: ALPRAZOLAM
     Indication: OSTEOARTHRITIS
  3. IBUPROFEN. [Concomitant]
     Active Substance: IBUPROFEN
     Indication: MYOSITIS
  4. IBUPROFEN. [Concomitant]
     Active Substance: IBUPROFEN
     Indication: OSTEOARTHRITIS
  5. SOMA [Concomitant]
     Active Substance: CARISOPRODOL
     Indication: MUSCLE STRAIN
  6. IBUDONE [Concomitant]
     Active Substance: HYDROCODONE BITARTRATE\IBUPROFEN
     Indication: MYOSITIS
  7. SOMA [Concomitant]
     Active Substance: CARISOPRODOL
     Indication: SOMATIC DYSFUNCTION
     Dosage: 250 MG, 2X/DAY
     Dates: start: 1997
  8. IBUDONE [Concomitant]
     Active Substance: HYDROCODONE BITARTRATE\IBUPROFEN
     Indication: OSTEOARTHRITIS
  9. IBUPROFEN. [Concomitant]
     Active Substance: IBUPROFEN
     Indication: TEMPOROMANDIBULAR JOINT SYNDROME
  10. ALPRAZOLAM. [Suspect]
     Active Substance: ALPRAZOLAM
     Indication: TEMPOROMANDIBULAR JOINT SYNDROME
     Dosage: 2 MG, 4X/DAY
     Route: 048
  11. IBUDONE [Concomitant]
     Active Substance: HYDROCODONE BITARTRATE\IBUPROFEN
     Indication: MIGRAINE
  12. IBUPROFEN. [Concomitant]
     Active Substance: IBUPROFEN
     Indication: SOMATIC DYSFUNCTION
     Dosage: 400 MG, 2X/DAY
     Dates: start: 19970213
  13. ALPRAZOLAM. [Suspect]
     Active Substance: ALPRAZOLAM
     Indication: MIGRAINE
  14. SOMA [Concomitant]
     Active Substance: CARISOPRODOL
     Indication: MUSCLE SPASMS
  15. IBUDONE [Concomitant]
     Active Substance: HYDROCODONE BITARTRATE\IBUPROFEN
     Indication: SOMATIC DYSFUNCTION
     Dosage: UNK
     Dates: start: 2016, end: 201909
  16. IBUDONE [Concomitant]
     Active Substance: HYDROCODONE BITARTRATE\IBUPROFEN
     Indication: TEMPOROMANDIBULAR JOINT SYNDROME

REACTIONS (5)
  - Somnolence [Unknown]
  - Product use in unapproved indication [Unknown]
  - Drug ineffective [Unknown]
  - Off label use [Unknown]
  - Fatigue [Unknown]
